FAERS Safety Report 11176436 (Version 1)
Quarter: 2015Q2

REPORT INFORMATION
  Report Type: Report from Study
  Country: FR (occurrence: FR)
  Receive Date: 20150610
  Receipt Date: 20150610
  Transmission Date: 20150821
  Serious: Yes (Hospitalization)
  Sender: FDA-Public Use
  Company Number: FR-ROCHE-1162512

PATIENT
  Age: 45 Year
  Sex: Female

DRUGS (12)
  1. CORTANCYL [Concomitant]
     Active Substance: PREDNISONE
     Route: 065
  2. ZITHROMAX [Concomitant]
     Active Substance: AZITHROMYCIN DIHYDRATE
  3. INEXIUM [Concomitant]
     Active Substance: ESOMEPRAZOLE
  4. INDOCID [Concomitant]
     Active Substance: INDOMETHACIN
  5. SPIRIVA [Concomitant]
     Active Substance: TIOTROPIUM BROMIDE MONOHYDRATE
  6. COLIMYCINE [Concomitant]
     Active Substance: COLISTIMETHATE SODIUM
  7. HYDROCORTISONE. [Concomitant]
     Active Substance: HYDROCORTISONE
  8. RITUXIMAB [Suspect]
     Active Substance: RITUXIMAB
     Route: 042
     Dates: start: 20110530, end: 20121102
  9. AMLOR [Concomitant]
     Active Substance: AMLODIPINE BESYLATE
  10. IPRATROPIUM BROMIDE\FENOTEROL HYDROBROMIDE [Concomitant]
     Active Substance: FENOTEROL HYDROBROMIDE\IPRATROPIUM BROMIDE
  11. RITUXIMAB [Suspect]
     Active Substance: RITUXIMAB
     Indication: RHEUMATOID ARTHRITIS
     Route: 042
     Dates: start: 20070723, end: 20100705
  12. VENTOLINE [Concomitant]
     Active Substance: ALBUTEROL

REACTIONS (11)
  - Pneumonia pseudomonal [Not Recovered/Not Resolved]
  - Nasopharyngitis [Recovered/Resolved]
  - Bronchopneumonia [Recovered/Resolved]
  - Asthenia [Not Recovered/Not Resolved]
  - Bronchitis [Recovered/Resolved]
  - Lung infection [Recovered/Resolved]
  - Respiratory disorder [Recovered/Resolved]
  - Umbilical hernia [Recovered/Resolved]
  - Sinusitis [Unknown]
  - Sinusitis [Not Recovered/Not Resolved]
  - Choking [Recovered/Resolved]

NARRATIVE: CASE EVENT DATE: 20071123
